FAERS Safety Report 7346564-X (Version None)
Quarter: 2011Q1

REPORT INFORMATION
  Report Type: 
  Country: None (occurrence: None)
  Receive Date: 20110311
  Receipt Date: 20101115
  Transmission Date: 20110831
  Serious: Yes (Other)
  Sender: FDA-Public Use
  Company Number: US-JNJFOC-20101206323

PATIENT
  Sex: Female

DRUGS (7)
  1. HEPARIN [Suspect]
     Indication: PREMEDICATION
     Dosage: ON DAYS 1 AND 2 PRIOR TO VINORELBINE, EVERY 28 DAY CYCLE
     Route: 042
  2. FILGRASTIM [Suspect]
     Indication: PROPHYLAXIS
     Route: 065
  3. PEGFILGRASTIM [Suspect]
     Indication: PROPHYLAXIS
     Route: 065
  4. DOXORUBICIN HCL [Suspect]
     Indication: BREAST CANCER METASTATIC
     Dosage: DAY 1 OF EACH 28 DAY CYCLE
     Route: 042
  5. SARGRAMOSTIM [Suspect]
     Indication: PROPHYLAXIS
     Route: 065
  6. VINORELBINE [Suspect]
     Indication: BREAST CANCER METASTATIC
     Dosage: DAYS 1 AND 2 OF EACH 28 DAY CYCLE
     Route: 042
  7. DEXAMETHASONE [Suspect]
     Indication: PREMEDICATION
     Dosage: ON DAY 1 OF EACH CYCLE PRIOR TO DOXORUBICIN HYDROCHLORIDE
     Route: 042

REACTIONS (1)
  - PACKED RED BLOOD CELL TRANSFUSION [None]
